FAERS Safety Report 9406388 (Version 5)
Quarter: 2014Q3

REPORT INFORMATION
  Report Type: Spontaneous
  Country: US (occurrence: US)
  Receive Date: 20130718
  Receipt Date: 20140702
  Transmission Date: 20150326
  Serious: No
  Sender: FDA-Public Use
  Company Number: US-009507513-1307USA007743

PATIENT

DRUGS (3)
  1. DOXORUBICIN [Concomitant]
     Active Substance: DOXORUBICIN
     Indication: CHEMOTHERAPY
  2. CYCLOPHOSPHAMIDE. [Concomitant]
     Active Substance: CYCLOPHOSPHAMIDE
     Indication: CHEMOTHERAPY
  3. EMEND [Suspect]
     Active Substance: APREPITANT
     Indication: PROPHYLAXIS OF NAUSEA AND VOMITING
     Route: 042

REACTIONS (13)
  - Infusion site erythema [Unknown]
  - Vein discolouration [Unknown]
  - Deep vein thrombosis [Unknown]
  - Infusion site pain [Unknown]
  - Infusion site induration [Unknown]
  - Infusion site scar [Unknown]
  - Angiopathy [Unknown]
  - Infusion site swelling [Unknown]
  - Infusion site urticaria [Unknown]
  - Infusion site thrombosis [Unknown]
  - Infusion site phlebitis [Unknown]
  - Infusion site extravasation [Unknown]
  - Thrombophlebitis superficial [Unknown]
